FAERS Safety Report 6342229-1 (Version None)
Quarter: 2009Q3

REPORT INFORMATION
  Report Type: 
  Country: None (occurrence: None)
  Receive Date: 20090903
  Receipt Date: 20090903
  Transmission Date: 20100115
  Serious: Yes (Other)
  Sender: FDA-Public Use
  Company Number: None

PATIENT
  Age: 36 Year
  Sex: Female
  Weight: 54.5 kg

DRUGS (1)
  1. BUPROPION HYDROCHLORIDE [Suspect]
     Indication: ANXIETY
     Dosage: 300MG 1XDAILY ORAL
     Route: 048
     Dates: start: 20090806

REACTIONS (3)
  - CRYING [None]
  - DEPRESSION [None]
  - STRESS AT WORK [None]
